FAERS Safety Report 4536197-2 (Version None)
Quarter: 2004Q4

REPORT INFORMATION
  Report Type: 
  Country: None (occurrence: None)
  Receive Date: 20041223
  Receipt Date: 20041118
  Transmission Date: 20050328
  Serious: Yes (Death, Life-Threatening, Hospitalization)
  Sender: FDA-Public Use
  Company Number: JP-GLAXOSMITHKLINE-B0357480A

PATIENT
  Age: 69 Year
  Sex: Male
  Weight: 59.5 kg

DRUGS (22)
  1. VALTREX [Suspect]
     Indication: HERPES ZOSTER
     Dosage: 1000MG THREE TIMES PER DAY
     Route: 048
     Dates: start: 20041018, end: 20041022
  2. ALBUMIN (HUMAN) [Suspect]
     Indication: HEPATIC CIRRHOSIS
     Dosage: 50ML TWICE PER DAY
     Route: 042
     Dates: start: 20040903
  3. ALLEGRA [Suspect]
     Indication: PRURITUS
     Dosage: 60MG TWICE PER DAY
     Route: 048
     Dates: end: 20041116
  4. DIART [Suspect]
     Indication: ASCITES
     Dosage: 30MG PER DAY
     Route: 048
     Dates: start: 20041023, end: 20041115
  5. LACTULOSE [Suspect]
     Indication: HYPERAMMONAEMIA
     Route: 054
  6. ULCERLMIN [Concomitant]
     Indication: GASTRIC ULCER
     Dosage: 2.001G PER DAY
     Route: 048
     Dates: end: 20041116
  7. PARIET [Concomitant]
     Indication: GASTRIC ULCER
     Dosage: 20MG PER DAY
     Route: 048
  8. GLAKAY [Concomitant]
     Indication: OSTEOPOROSIS PROPHYLAXIS
     Dosage: 45MG PER DAY
     Route: 048
     Dates: end: 20041116
  9. LIVACT [Concomitant]
     Indication: HEPATIC CIRRHOSIS
     Dosage: 12.45G PER DAY
     Route: 048
     Dates: end: 20041016
  10. MAGNESIUM OXIDE [Concomitant]
     Indication: CONSTIPATION
     Dosage: 3G PER DAY
     Route: 048
  11. GLYCYRON [Concomitant]
     Indication: HEPATIC CIRRHOSIS
     Route: 048
     Dates: end: 20041116
  12. ALDACTONE A [Concomitant]
     Indication: ASCITES
     Dosage: 100MG PER DAY
     Route: 048
  13. LASIX [Concomitant]
     Indication: ASCITES
     Dosage: 80MG PER DAY
     Route: 048
  14. TAURINE [Concomitant]
     Indication: HEPATIC CIRRHOSIS
     Dosage: 3.06G PER DAY
     Route: 048
     Dates: end: 20041116
  15. LACTULOSE [Concomitant]
     Indication: HEPATIC CIRRHOSIS
     Dosage: 54G PER DAY
     Route: 048
  16. AMINOLEBAN [Concomitant]
     Indication: HEPATIC CIRRHOSIS
     Dosage: 200ML PER DAY
     Route: 042
     Dates: start: 20040817
  17. HUMULIN R [Concomitant]
     Indication: DIABETES MELLITUS
     Route: 058
     Dates: start: 20041111
  18. LASIX [Concomitant]
     Dosage: 10MG PER DAY
     Route: 042
     Dates: start: 20041114
  19. LAMISIL [Concomitant]
     Indication: NAIL TINEA
     Route: 061
  20. HIRUDOID [Concomitant]
     Indication: PRURITUS
     Route: 061
     Dates: start: 20041113
  21. ASPARA K [Concomitant]
     Indication: MINERAL DEFICIENCY
     Route: 048
     Dates: start: 20041121
  22. LAXOBERON [Concomitant]
     Indication: CONSTIPATION
     Dosage: 20UNIT PER DAY
     Route: 048

REACTIONS (10)
  - BLOOD PRESSURE DECREASED [None]
  - BONE MARROW DISORDER [None]
  - HEPATIC ATROPHY [None]
  - HEPATIC CIRRHOSIS [None]
  - HEPATIC FAILURE [None]
  - LUNG ABSCESS [None]
  - LYMPHOCYTE COUNT DECREASED [None]
  - PLATELET COUNT DECREASED [None]
  - PNEUMONIA [None]
  - THROMBOCYTOPENIA [None]
